FAERS Safety Report 18001905 (Version 1)
Quarter: 2020Q3

REPORT INFORMATION
  Report Type: Spontaneous
  Country: US (occurrence: US)
  Receive Date: 20200709
  Receipt Date: 20200709
  Transmission Date: 20201103
  Serious: No
  Sender: FDA-Public Use
  Company Number: US-ALEXION-A202009568

PATIENT
  Age: 51 Year
  Sex: Female

DRUGS (5)
  1. SOLIRIS [Suspect]
     Active Substance: ECULIZUMAB
     Indication: NEUROMYELITIS OPTICA SPECTRUM DISORDER
     Dosage: UNK
     Route: 065
     Dates: start: 2017, end: 202001
  2. SOLIRIS [Suspect]
     Active Substance: ECULIZUMAB
     Dosage: UNK, Q2W
     Route: 042
  3. PREDNISONE. [Concomitant]
     Active Substance: PREDNISONE
     Dosage: 5 MG, UNK
     Route: 048
  4. PREDNISONE. [Concomitant]
     Active Substance: PREDNISONE
     Indication: PRODUCT USED FOR UNKNOWN INDICATION
     Dosage: 30 MG, UNK
     Route: 065
  5. SOLIRIS [Suspect]
     Active Substance: ECULIZUMAB
     Dosage: UNK
     Route: 065
     Dates: start: 2019

REACTIONS (11)
  - Loss of personal independence in daily activities [Unknown]
  - Pain in extremity [Unknown]
  - Infusion related reaction [Recovered/Resolved]
  - Eye pain [Unknown]
  - Symptom recurrence [Unknown]
  - Gait disturbance [Unknown]
  - Dyskinesia [Unknown]
  - Fatigue [Recovered/Resolved]
  - Speech disorder [Unknown]
  - Memory impairment [Unknown]
  - Balance disorder [Unknown]

NARRATIVE: CASE EVENT DATE: 201903
